FAERS Safety Report 6465518-9 (Version None)
Quarter: 2009Q4

REPORT INFORMATION
  Report Type: 
  Country: None (occurrence: None)
  Receive Date: 20091201
  Receipt Date: 20090909
  Transmission Date: 20100525
  Serious: No
  Sender: FDA-Public Use
  Company Number: US-AMGEN-KDL314401

PATIENT
  Sex: Female
  Weight: 134.8 kg

DRUGS (1)
  1. ENBREL [Suspect]
     Indication: PSORIATIC ARTHROPATHY
     Route: 058
     Dates: start: 20080116, end: 20090101

REACTIONS (3)
  - DYSMENORRHOEA [None]
  - MENORRHAGIA [None]
  - MENSTRUAL DISORDER [None]
